FAERS Safety Report 9751589 (Version 2)
Quarter: 2014Q1

REPORT INFORMATION
  Report Type: Spontaneous
  Country: US (occurrence: US)
  Receive Date: 20131212
  Receipt Date: 20140210
  Transmission Date: 20141002
  Serious: Yes (Hospitalization, Other)
  Sender: FDA-Public Use
  Company Number: US-GILEAD-2013-0089849

PATIENT
  Age: 54 Year
  Sex: Female

DRUGS (22)
  1. LETAIRIS [Suspect]
     Indication: PULMONARY HYPERTENSION
     Dosage: 10 MG, QD
     Route: 048
     Dates: start: 20130523
  2. LETAIRIS [Suspect]
     Indication: MIXED CONNECTIVE TISSUE DISEASE
  3. ADCIRCA [Concomitant]
     Indication: PULMONARY ARTERIAL HYPERTENSION
     Dosage: 20 MG, QD
  4. DRONABINOL [Concomitant]
  5. EVOXAC [Concomitant]
  6. OMEPRAZOLE [Concomitant]
  7. POTASSIUM [Concomitant]
  8. CITALOPRAM HYDROBROMIDE [Concomitant]
  9. CRESTOR [Concomitant]
  10. METHOTREXATE [Concomitant]
  11. NIFEDIPINE [Concomitant]
  12. FOLIC ACID [Concomitant]
  13. SYNTHROID [Concomitant]
  14. CALCIUM [Concomitant]
  15. MAGNESIUM [Concomitant]
  16. VITAMIN D NOS [Concomitant]
  17. ZINC [Concomitant]
  18. FISH OIL [Concomitant]
  19. DIGOXIN [Concomitant]
  20. FUROSEMIDE [Concomitant]
  21. VAGIFEM [Concomitant]
  22. TIZANIDINE [Concomitant]

REACTIONS (1)
  - Appendicitis perforated [Recovered/Resolved]
